FAERS Safety Report 16009908 (Version 2)
Quarter: 2021Q3

REPORT INFORMATION
  Report Type: Spontaneous
  Country: US (occurrence: US)
  Receive Date: 20190227
  Receipt Date: 20210721
  Transmission Date: 20211014
  Serious: No
  Sender: FDA-Public Use
  Company Number: US-SA-2019SA052326

PATIENT
  Sex: Female

DRUGS (2)
  1. OTEZLA [Concomitant]
     Active Substance: APREMILAST
  2. DUPIXENT [Suspect]
     Active Substance: DUPILUMAB
     Indication: DERMATITIS ATOPIC
     Dosage: 300 MG, QOW
     Route: 058
     Dates: start: 20190131

REACTIONS (4)
  - Sinusitis [Recovering/Resolving]
  - Oropharyngeal discomfort [Not Recovered/Not Resolved]
  - Nasopharyngitis [Unknown]
  - Nasopharyngitis [Recovering/Resolving]
